FAERS Safety Report 9201394 (Version 2)
Quarter: 2013Q2

REPORT INFORMATION
  Report Type: Spontaneous
  Country: JP (occurrence: JP)
  Receive Date: 20130401
  Receipt Date: 20130426
  Transmission Date: 20140414
  Serious: Yes (Hospitalization, Other)
  Sender: FDA-Public Use
  Company Number: JP-BRISTOL-MYERS SQUIBB COMPANY-17454000

PATIENT
  Age: 68 Year
  Sex: Female

DRUGS (4)
  1. ABILIFY TABS [Suspect]
     Indication: SCHIZOPHRENIA
     Route: 048
     Dates: end: 20130226
  2. BIPERIDEN HCL [Suspect]
     Indication: SCHIZOPHRENIA
     Dosage: TAB 1MG
     Route: 048
     Dates: end: 20130226
  3. ZYPREXA [Suspect]
     Indication: SCHIZOPHRENIA
     Dosage: PRODUCT STRENGTH IS 20MG?UNK-20FB13?8MAR13-UNK
     Route: 048
  4. ZOTEPINE [Suspect]
     Dosage: 50MG TABS
     Route: 048
     Dates: end: 20130226

REACTIONS (2)
  - Neuroleptic malignant syndrome [Recovering/Resolving]
  - Intestinal obstruction [Unknown]
